FAERS Safety Report 11854472 (Version 3)
Quarter: 2015Q4

REPORT INFORMATION
  Report Type: Spontaneous
  Country: US (occurrence: US)
  Receive Date: 20151221
  Receipt Date: 20151222
  Transmission Date: 20160305
  Serious: No
  Sender: FDA-Public Use
  Company Number: US-009507513-1512USA010171

PATIENT
  Age: 23 Year
  Sex: Female
  Weight: 191.84 kg

DRUGS (1)
  1. NEXPLANON [Suspect]
     Active Substance: ETONOGESTREL
     Dosage: UNK
     Route: 059
     Dates: start: 20150227

REACTIONS (3)
  - Fall [Unknown]
  - Limb injury [Unknown]
  - Device breakage [Unknown]

NARRATIVE: CASE EVENT DATE: 20151210
